FAERS Safety Report 8355176-0 (Version None)
Quarter: 2012Q2

REPORT INFORMATION
  Report Type: 
  Country: None (occurrence: None)
  Receive Date: 20120510
  Receipt Date: 20120423
  Transmission Date: 20120825
  Serious: Yes (Life-Threatening, Hospitalization, Other)
  Sender: FDA-Public Use
  Company Number: 2012P1017702

PATIENT
  Age: 50 Year
  Sex: Female
  Weight: 137 kg

DRUGS (2)
  1. AMLODIPINE [Suspect]
     Indication: OVERDOSE
     Dosage: 770 MG;X1;
  2. LOSARTAN POTASSIUM [Suspect]
     Indication: OVERDOSE
     Dosage: 16,640 MG;X1;

REACTIONS (9)
  - PULMONARY OEDEMA [None]
  - ANURIA [None]
  - HYPOXIA [None]
  - HYPERKALAEMIA [None]
  - OVERDOSE [None]
  - VOMITING [None]
  - METABOLIC ACIDOSIS [None]
  - RENAL IMPAIRMENT [None]
  - BLOOD PRESSURE DECREASED [None]
